FAERS Safety Report 8486204 (Version 2)
Quarter: 2013Q1

REPORT INFORMATION
  Report Type: Spontaneous
  Country: US (occurrence: US)
  Receive Date: 20120402
  Receipt Date: 20130214
  Transmission Date: 20140127
  Serious: No
  Sender: FDA-Public Use
  Company Number: US-PFIZER INC-2012079987

PATIENT
  Age: 57 Year
  Sex: Female
  Weight: 77.1 kg

DRUGS (4)
  1. PREMPRO [Suspect]
     Dosage: 0.625MG/2.5MG MG, 1X/DAY
     Route: 048
     Dates: start: 2006, end: 201112
  2. WELLBUTRIN [Concomitant]
     Indication: DEPRESSION
     Dosage: UNK
  3. CYMBALTA [Concomitant]
     Indication: DEPRESSION
     Dosage: UNK
  4. ALPRAZOLAM [Concomitant]
     Indication: ANXIETY
     Dosage: 0.5 MG, AS NEEDED

REACTIONS (9)
  - Anxiety [Not Recovered/Not Resolved]
  - Depression [Not Recovered/Not Resolved]
  - Agitation [Not Recovered/Not Resolved]
  - Personality change [Not Recovered/Not Resolved]
  - Emotional disorder [Not Recovered/Not Resolved]
  - Stress [Not Recovered/Not Resolved]
  - Headache [Not Recovered/Not Resolved]
  - Mood altered [Not Recovered/Not Resolved]
  - Irritability [Not Recovered/Not Resolved]
